FAERS Safety Report 10588803 (Version 3)
Quarter: 2015Q3

REPORT INFORMATION
  Report Type: Report from Study
  Country: US (occurrence: US)
  Receive Date: 20141117
  Receipt Date: 20150818
  Transmission Date: 20151125
  Serious: No
  Sender: FDA-Public Use
  Company Number: US-GILEAD-2014-0122191

PATIENT
  Age: 55 Year
  Sex: Male

DRUGS (11)
  1. MYRBETRIQ [Concomitant]
     Active Substance: MIRABEGRON
  2. PANTOPRAZOLE [Concomitant]
     Active Substance: PANTOPRAZOLE SODIUM
  3. BACLOFEN. [Concomitant]
     Active Substance: BACLOFEN
  4. VELETRI [Concomitant]
     Active Substance: EPOPROSTENOL
  5. LEVOTHYROXINE. [Concomitant]
     Active Substance: LEVOTHYROXINE
  6. FUROSEMIDE. [Concomitant]
     Active Substance: FUROSEMIDE
  7. MAG-OX [Concomitant]
     Active Substance: MAGNESIUM OXIDE
  8. OLANZAPINE. [Concomitant]
     Active Substance: OLANZAPINE
  9. AMBRISENTAN [Suspect]
     Active Substance: AMBRISENTAN
     Indication: COR PULMONALE
     Dosage: 10 MG, QD
     Route: 065
     Dates: start: 20130510
  10. FINASTERIDE. [Concomitant]
     Active Substance: FINASTERIDE
  11. ASPRIN [Concomitant]
     Active Substance: ASPIRIN

REACTIONS (2)
  - Intentional underdose [Unknown]
  - Unevaluable event [Not Recovered/Not Resolved]
